FAERS Safety Report 23394692 (Version 1)
Quarter: 2024Q1

REPORT INFORMATION
  Report Type: Report from Study
  Country: UY (occurrence: UY)
  Receive Date: 20240112
  Receipt Date: 20240112
  Transmission Date: 20240410
  Serious: Yes (Hospitalization)
  Sender: FDA-Public Use
  Company Number: UY-ABBVIE-5577551

PATIENT
  Age: 56 Year
  Sex: Female

DRUGS (1)
  1. RINVOQ [Suspect]
     Active Substance: UPADACITINIB
     Indication: Rheumatoid arthritis
     Dosage: FORM STRENGTH WAS 15 MILLIGRAM.
     Route: 048
     Dates: start: 20211215

REACTIONS (10)
  - Immunodeficiency [Unknown]
  - Panic disorder [Unknown]
  - Urinary tract infection [Unknown]
  - Depression [Unknown]
  - Headache [Unknown]
  - Unevaluable event [Unknown]
  - Blood pressure increased [Unknown]
  - Dizziness [Unknown]
  - Nephrolithiasis [Not Recovered/Not Resolved]
  - Polyarthritis [Unknown]

NARRATIVE: CASE EVENT DATE: 20231221
